FAERS Safety Report 24418801 (Version 3)
Quarter: 2025Q1

REPORT INFORMATION
  Report Type: Report from Study
  Country: US (occurrence: US)
  Receive Date: 20241009
  Receipt Date: 20250311
  Transmission Date: 20250409
  Serious: Yes (Other)
  Sender: UCB
  Company Number: US-UCBSA-2024050952

PATIENT
  Age: 22 Year
  Sex: Female
  Weight: 77.6 kg

DRUGS (1)
  1. FINTEPLA [Suspect]
     Active Substance: FENFLURAMINE
     Indication: Severe myoclonic epilepsy of infancy
     Dosage: 3 MILLILITER, 2X/DAY (BID)

REACTIONS (4)
  - Tricuspid valve incompetence [Unknown]
  - Pulmonary valve incompetence [Unknown]
  - Pneumothorax [Unknown]
  - Illness [Not Recovered/Not Resolved]

NARRATIVE: CASE EVENT DATE: 20240924
